FAERS Safety Report 5415682-5 (Version None)
Quarter: 2007Q3

REPORT INFORMATION
  Report Type: 
  Country: None (occurrence: None)
  Receive Date: 20070731
  Receipt Date: 20070624
  Transmission Date: 20080115
  Serious: No
  Sender: FDA-Public Use
  Company Number: US200706000210

PATIENT
  Age: 67 Year
  Sex: Female
  Weight: 99.8 kg

DRUGS (5)
  1. BYETTA [Suspect]
     Indication: TYPE 2 DIABETES MELLITUS
     Dosage: 5 UG, 2/D, SUBCUTANEOUS   10 UG, 2/D, SUBCUTANEOUS
     Route: 058
     Dates: start: 20070501, end: 20070601
  2. BYETTA [Suspect]
     Indication: TYPE 2 DIABETES MELLITUS
     Dosage: 5 UG, 2/D, SUBCUTANEOUS   10 UG, 2/D, SUBCUTANEOUS
     Route: 058
     Dates: start: 20070601
  3. BYETTA [Suspect]
  4. GLIPIZIDE [Concomitant]
  5. ACTOS /USA/ (PIOGLITAZONE HYDROCHLORIDE) [Concomitant]

REACTIONS (7)
  - BLOOD GLUCOSE INCREASED [None]
  - CHAPPED LIPS [None]
  - DRUG INEFFECTIVE [None]
  - HEART RATE INCREASED [None]
  - INJECTION SITE RASH [None]
  - LIP SWELLING [None]
  - NERVOUSNESS [None]
